FAERS Safety Report 17740365 (Version 1)
Quarter: 2020Q2

REPORT INFORMATION
  Report Type: Report from Study
  Country: None (occurrence: CA)
  Receive Date: 20200504
  Receipt Date: 20200504
  Transmission Date: 20200714
  Serious: Yes (Hospitalization)
  Sender: FDA-Public Use
  Company Number: CA-ABBVIE-20K-028-3386522-00

PATIENT
  Age: 27 Year
  Sex: Male

DRUGS (3)
  1. HUMIRA [Suspect]
     Active Substance: ADALIMUMAB
     Route: 058
     Dates: start: 202004
  2. HUMIRA [Suspect]
     Active Substance: ADALIMUMAB
     Indication: CROHN^S DISEASE
     Route: 058
     Dates: start: 20160107
  3. HUMIRA [Suspect]
     Active Substance: ADALIMUMAB
     Route: 058
     Dates: end: 202003

REACTIONS (8)
  - Inflammatory bowel disease [Unknown]
  - Chest discomfort [Not Recovered/Not Resolved]
  - Crohn^s disease [Not Recovered/Not Resolved]
  - Intentional product misuse [Unknown]
  - Enterocolonic fistula [Not Recovered/Not Resolved]
  - Cough [Not Recovered/Not Resolved]
  - Small intestinal obstruction [Unknown]
  - Ileal stenosis [Not Recovered/Not Resolved]

NARRATIVE: CASE EVENT DATE: 201909
